FAERS Safety Report 4962112-3 (Version None)
Quarter: 2006Q2

REPORT INFORMATION
  Report Type: 
  Country: None (occurrence: None)
  Receive Date: 20060404
  Receipt Date: 20060328
  Transmission Date: 20061013
  Serious: Yes (Hospitalization, Other)
  Sender: FDA-Public Use
  Company Number: US-MERCK-0603USA04372

PATIENT
  Age: 72 Year
  Sex: Female
  Weight: 73 kg

DRUGS (1)
  1. VIOXX [Suspect]
     Indication: ARTHRITIS
     Route: 048
     Dates: start: 20011001, end: 20030101

REACTIONS (6)
  - ASTHENIA [None]
  - CEREBROVASCULAR ACCIDENT [None]
  - DEAFNESS [None]
  - DEAFNESS UNILATERAL [None]
  - DIZZINESS [None]
  - DROOLING [None]
